FAERS Safety Report 9280159 (Version 1)
Quarter: 2012Q4

REPORT INFORMATION
  Report Type: Spontaneous
  Country: DE (occurrence: None)
  Receive Date: 20120918
  Receipt Date: 20120918
  Transmission Date: 20130627
  Serious: Yes (Other)
  Sender: FDA-Public Use
  Company Number: GER/GER/12/0025810

PATIENT
  Age: 60 None
  Sex: Female
  Weight: 66 kg

DRUGS (1)
  1. ATORVASTATIN [Suspect]
     Indication: HYPERLIPOPROTEINAEMIA
     Route: 048

REACTIONS (5)
  - Myalgia [None]
  - Headache [None]
  - Cardiac discomfort [None]
  - Abasia [None]
  - Palpitations [None]
